FAERS Safety Report 10583371 (Version 1)
Quarter: 2014Q4

REPORT INFORMATION
  Report Type: Spontaneous
  Country: US (occurrence: None)
  Receive Date: 20141112
  Receipt Date: 20141112
  Transmission Date: 20150529
  Serious: Yes (Hospitalization)
  Sender: FDA-Public Use
  Company Number: AEGR000874

PATIENT
  Age: 76 Year
  Sex: Female
  Weight: 54.4 kg

DRUGS (1)
  1. JUXTAPID [Suspect]
     Active Substance: LOMITAPIDE MESYLATE
     Indication: HYPERCHOLESTEROLAEMIA
     Route: 048
     Dates: start: 201403

REACTIONS (2)
  - Inflammation [None]
  - Off label use [None]

NARRATIVE: CASE EVENT DATE: 201403
